FAERS Safety Report 18102693 (Version 1)
Quarter: 2020Q3

REPORT INFORMATION
  Report Type: Spontaneous
  Country: IT (occurrence: IT)
  Receive Date: 20200803
  Receipt Date: 20200803
  Transmission Date: 20201103
  Serious: Yes (Other)
  Sender: FDA-Public Use
  Company Number: IT-AUROBINDO-AUR-APL-2020-037366

PATIENT
  Age: 55 Year
  Sex: Male
  Weight: 80 kg

DRUGS (1)
  1. MEROPENEM. [Suspect]
     Active Substance: MEROPENEM
     Indication: DIABETIC FOOT INFECTION
     Dosage: 3 GRAM, ONCE A DAY
     Route: 065
     Dates: start: 20200710, end: 20200711

REACTIONS (2)
  - Dermatitis bullous [Recovering/Resolving]
  - Skin reaction [Recovering/Resolving]

NARRATIVE: CASE EVENT DATE: 20200711
